FAERS Safety Report 20868668 (Version 5)
Quarter: 2023Q1

REPORT INFORMATION
  Report Type: Spontaneous
  Country: US (occurrence: US)
  Receive Date: 20220524
  Receipt Date: 20230130
  Transmission Date: 20230418
  Serious: Yes (Other)
  Sender: FDA-Public Use
  Company Number: US-PFIZER INC-202200712917

PATIENT
  Age: 63 Year
  Sex: Female

DRUGS (1)
  1. PREMARIN [Suspect]
     Active Substance: ESTROGENS, CONJUGATED
     Dosage: UNK

REACTIONS (6)
  - Hysterectomy [Unknown]
  - Hyperhidrosis [Unknown]
  - Hot flush [Unknown]
  - Feeling hot [Unknown]
  - Premenstrual syndrome [Unknown]
  - Sleep disorder [Unknown]
